FAERS Safety Report 6399232-5 (Version None)
Quarter: 2009Q4

REPORT INFORMATION
  Report Type: 
  Country: None (occurrence: None)
  Receive Date: 20091014
  Receipt Date: 20071008
  Transmission Date: 20100525
  Serious: Yes (Other)
  Sender: FDA-Public Use
  Company Number: US-ASTRAZENECA-2006UW05439

PATIENT
  Age: 682 Month
  Sex: Male
  Weight: 100.7 kg

DRUGS (9)
  1. SEROQUEL [Suspect]
     Indication: BIPOLAR DISORDER
     Route: 048
     Dates: start: 20010101, end: 20020101
  2. SEROQUEL [Suspect]
     Route: 048
     Dates: start: 20020905
  3. ZYPREXA [Suspect]
     Indication: BIPOLAR DISORDER
     Route: 048
     Dates: start: 20020301, end: 20030301
  4. ZYPREXA [Suspect]
     Dates: start: 20020905
  5. RISPERDAL [Concomitant]
     Indication: BIPOLAR DISORDER
     Route: 048
     Dates: start: 20050701
  6. HALDOL [Concomitant]
     Dates: start: 19950101
  7. NEURONTIN [Concomitant]
     Dates: start: 20020905
  8. WELLBUTRIN [Concomitant]
     Dates: start: 20020905
  9. GLUCOTROL XL [Concomitant]
     Route: 048
     Dates: start: 20021028

REACTIONS (4)
  - DIABETES MELLITUS [None]
  - GLUCOSE TOLERANCE IMPAIRED [None]
  - HYPERGLYCAEMIA [None]
  - PERIPHERAL SENSORY NEUROPATHY [None]
